FAERS Safety Report 6608902-2 (Version None)
Quarter: 2010Q1

REPORT INFORMATION
  Report Type: 
  Country: None (occurrence: None)
  Receive Date: 20100301
  Receipt Date: 20100219
  Transmission Date: 20100710
  Serious: Yes (Other)
  Sender: FDA-Public Use
  Company Number: SE-PFIZER INC-2010021969

PATIENT
  Age: 62 Year
  Sex: Female

DRUGS (4)
  1. LIPITOR [Suspect]
     Dosage: 20 MG/24H, UNK
     Dates: start: 20100108, end: 20100217
  2. BEHEPAN [Concomitant]
     Dosage: 1 MG/24H, UNK
  3. LEVOTHYROXINE SODIUM [Concomitant]
     Dosage: 125 MG/24H, UNK
  4. BISOPROLOL [Concomitant]
     Dosage: 5 MG/24H, UNK

REACTIONS (9)
  - ABDOMINAL PAIN UPPER [None]
  - EYELID OEDEMA [None]
  - FATIGUE [None]
  - NASAL OEDEMA [None]
  - OCULAR HYPERAEMIA [None]
  - SWELLING [None]
  - VAGINAL SWELLING [None]
  - VAGINAL ULCERATION [None]
  - VULVOVAGINAL PRURITUS [None]
